FAERS Safety Report 9834879 (Version 2)
Quarter: 2014Q1

REPORT INFORMATION
  Report Type: Spontaneous
  Country: US (occurrence: US)
  Receive Date: 20140122
  Receipt Date: 20140319
  Transmission Date: 20141002
  Serious: Yes (Hospitalization)
  Sender: FDA-Public Use
  Company Number: US-GLAXOSMITHKLINE-A1056753A

PATIENT
  Age: 64 Year
  Sex: Female

DRUGS (9)
  1. ADVAIR HFA [Suspect]
     Indication: CHRONIC OBSTRUCTIVE PULMONARY DISEASE
     Dosage: 2PUFF TWICE PER DAY
     Route: 055
     Dates: start: 2011
  2. PREDNISONE [Suspect]
     Indication: CHRONIC OBSTRUCTIVE PULMONARY DISEASE
     Route: 065
  3. CENTRUM [Concomitant]
  4. VITAMIN E [Concomitant]
  5. VITAMIN C [Concomitant]
  6. ESTRADIOL [Concomitant]
  7. SYNTHROID [Concomitant]
  8. COMBIVENT [Concomitant]
  9. OXYGEN [Concomitant]
     Dates: start: 20130322

REACTIONS (10)
  - Pneumonia [Recovered/Resolved]
  - Oxygen supplementation [Not Recovered/Not Resolved]
  - Chronic obstructive pulmonary disease [Recovering/Resolving]
  - Inhalation therapy [Recovering/Resolving]
  - Malaise [Recovering/Resolving]
  - Nasopharyngitis [Recovering/Resolving]
  - Infection [Recovering/Resolving]
  - Gastric disorder [Unknown]
  - Tremor [Unknown]
  - Feeling abnormal [Unknown]
